FAERS Safety Report 17129576 (Version 7)
Quarter: 2021Q1

REPORT INFORMATION
  Report Type: Spontaneous
  Country: US (occurrence: US)
  Receive Date: 20191209
  Receipt Date: 20210129
  Transmission Date: 20210419
  Serious: No
  Sender: FDA-Public Use
  Company Number: US-PFIZER INC-2019529485

PATIENT
  Age: 71 Year
  Sex: Female
  Weight: 71.67 kg

DRUGS (1)
  1. PREMARIN [Suspect]
     Active Substance: ESTROGENS, CONJUGATED
     Indication: HYSTERECTOMY
     Dosage: 0.3 MG, 1X/DAY
     Route: 048

REACTIONS (3)
  - Illness [Unknown]
  - Pain [Unknown]
  - Off label use [Unknown]
